FAERS Safety Report 17684958 (Version 1)
Quarter: 2020Q2

REPORT INFORMATION
  Report Type: Report from Study
  Country: BR (occurrence: BR)
  Receive Date: 20200420
  Receipt Date: 20200420
  Transmission Date: 20200714
  Serious: Yes (Death, Other)
  Sender: FDA-Public Use
  Company Number: BR-UCBSA-2020016101

PATIENT
  Age: 0 Year

DRUGS (1)
  1. CERTOLIZUMAB PEGOL CD [Suspect]
     Active Substance: CERTOLIZUMAB PEGOL
     Indication: CROHN^S DISEASE
     Dosage: 400 MILLIGRAM, MONTHLY (QM)
     Route: 064
     Dates: end: 202003

REACTIONS (3)
  - Maternal exposure during pregnancy [Unknown]
  - Death neonatal [Fatal]
  - Premature baby [Unknown]

NARRATIVE: CASE EVENT DATE: 2020
